FAERS Safety Report 25146261 (Version 1)
Quarter: 2025Q2

REPORT INFORMATION
  Report Type: Spontaneous
  Country: US (occurrence: US)
  Receive Date: 20250401
  Receipt Date: 20250401
  Transmission Date: 20250716
  Serious: Yes (Hospitalization)
  Sender: MYLAN
  Company Number: US-MYLANLABS-2025M1026841

PATIENT
  Age: 80 Year
  Sex: Male

DRUGS (4)
  1. MIDODRINE [Suspect]
     Active Substance: MIDODRINE
     Indication: Hypotension
  2. MIDODRINE [Suspect]
     Active Substance: MIDODRINE
     Route: 065
  3. MIDODRINE [Suspect]
     Active Substance: MIDODRINE
     Route: 065
  4. MIDODRINE [Suspect]
     Active Substance: MIDODRINE

REACTIONS (3)
  - Increased ventricular afterload [Unknown]
  - Heart failure with reduced ejection fraction [Unknown]
  - Condition aggravated [Unknown]
